FAERS Safety Report 7492535-2 (Version None)
Quarter: 2011Q2

REPORT INFORMATION
  Report Type: 
  Country: None (occurrence: None)
  Receive Date: 20110519
  Receipt Date: 20110512
  Transmission Date: 20111010
  Serious: Yes (Hospitalization)
  Sender: FDA-Public Use
  Company Number: JP-PFIZER INC-2011089997

PATIENT
  Age: 58 Year
  Sex: Female
  Weight: 50 kg

DRUGS (7)
  1. LOXONIN [Suspect]
     Indication: ARTHRALGIA
     Dosage: 60 MG, 3X/DAY
     Route: 048
     Dates: start: 20110425, end: 20110509
  2. EBRANTIL [Suspect]
     Indication: URINARY RETENTION
     Dosage: 30 MG, 2X/DAY
     Route: 048
     Dates: start: 20110425, end: 20110509
  3. METHYCOBAL [Concomitant]
     Indication: POST HERPETIC NEURALGIA
     Dosage: 500 MG, 3X/DAY
     Route: 048
     Dates: start: 20110425, end: 20110426
  4. ZOVIRAX [Concomitant]
     Indication: HERPES ZOSTER
     Dosage: UNK
     Route: 041
     Dates: start: 20110425, end: 20110425
  5. MUCOSTA [Concomitant]
     Indication: ARTHRALGIA
     Dosage: 100 MG, 3X/DAY
     Route: 048
     Dates: start: 20110425, end: 20110509
  6. LYRICA [Suspect]
     Indication: POST HERPETIC NEURALGIA
     Dosage: 75 MG, 2X/DAY
     Route: 048
     Dates: start: 20110425, end: 20110426
  7. UBRETID [Concomitant]
     Indication: URINARY RETENTION
     Dosage: 5 MG, 1X/DAY
     Route: 048
     Dates: start: 20110425, end: 20110426

REACTIONS (3)
  - NAUSEA [None]
  - COLD SWEAT [None]
  - DIZZINESS [None]
